FAERS Safety Report 11976899 (Version 1)
Quarter: 2016Q1

REPORT INFORMATION
  Report Type: Spontaneous
  Country: US (occurrence: US)
  Receive Date: 20160129
  Receipt Date: 20160129
  Transmission Date: 20160526
  Serious: Yes (Other)
  Sender: FDA-Public Use
  Company Number: US-JNJFOC-20160117063

PATIENT
  Age: 32 Year
  Sex: Female

DRUGS (2)
  1. ELMIRON [Suspect]
     Active Substance: PENTOSAN POLYSULFATE SODIUM
     Indication: URINARY TRACT DISORDER
     Route: 048
  2. ELMIRON [Suspect]
     Active Substance: PENTOSAN POLYSULFATE SODIUM
     Indication: CYSTITIS INTERSTITIAL
     Route: 048

REACTIONS (4)
  - Diarrhoea [Unknown]
  - Abdominal pain [Unknown]
  - Drug-induced liver injury [Recovered/Resolved]
  - Haematochezia [Unknown]
